FAERS Safety Report 25661514 (Version 1)
Quarter: 2025Q3

REPORT INFORMATION
  Report Type: Spontaneous
  Country: US (occurrence: US)
  Receive Date: 20250808
  Receipt Date: 20250808
  Transmission Date: 20251020
  Serious: Yes (Hospitalization)
  Sender: MYLAN
  Company Number: US-MYLANLABS-2025M1065215

PATIENT
  Age: 72 Year
  Sex: Female

DRUGS (2)
  1. DEXAMETHASONE [Suspect]
     Active Substance: DEXAMETHASONE
     Indication: Stridor
  2. RACEPINEPHRINE [Suspect]
     Active Substance: RACEPINEPHRINE
     Indication: Stridor

REACTIONS (1)
  - Drug ineffective [Unknown]
